FAERS Safety Report 16624750 (Version 4)
Quarter: 2020Q4

REPORT INFORMATION
  Report Type: Spontaneous
  Country: US (occurrence: US)
  Receive Date: 20190724
  Receipt Date: 20201117
  Transmission Date: 20210113
  Serious: Yes (Other)
  Sender: FDA-Public Use
  Company Number: US-PFIZER INC-2019312869

PATIENT
  Age: 54 Year
  Sex: Male

DRUGS (2)
  1. RAPAMUNE [Suspect]
     Active Substance: SIROLIMUS
     Dosage: UNK (3 TABLETS ONCE A DAY FOR 90 DAYS ALT 4 DAILY, QUANTITY 288)
  2. RAPAMUNE [Suspect]
     Active Substance: SIROLIMUS
     Dosage: 3 MG, DAILY

REACTIONS (3)
  - Hypertension [Unknown]
  - Hypothyroidism [Unknown]
  - Deep vein thrombosis [Unknown]
